FAERS Safety Report 8809153 (Version 4)
Quarter: 2014Q2

REPORT INFORMATION
  Report Type: Spontaneous
  Country: US (occurrence: None)
  Receive Date: 20120920
  Receipt Date: 20140404
  Transmission Date: 20141212
  Serious: Yes (Other)
  Sender: FDA-Public Use
  Company Number: JPI-P-025086

PATIENT
  Age: 51 Year
  Sex: Female

DRUGS (13)
  1. XYREM [Suspect]
     Indication: SLEEP DISORDER
     Route: 048
     Dates: start: 20110428, end: 2011
  2. LEVOTHYROXINE (LEVOTHYROXINE SODIUM) [Concomitant]
  3. NIFEDIPINE (NIFEDIPINE) (NIFEDIPINE) [Concomitant]
  4. METOPROLOL (METOPROLOL SUCCINATE) [Concomitant]
  5. CELEBREX (CELECOXIB) [Concomitant]
  6. NUVIGIL (ARMODAFINIL) [Concomitant]
  7. FERROUS SULFATE (FERROUS SULFATE) [Concomitant]
  8. RASPBERRY KETONES (UNSPECIFIED HERBAL) [Concomitant]
  9. VITAMIN B2 (VITAMIN B2) [Concomitant]
  10. VITAMIN D (COLECALCIFEROL) [Concomitant]
  11. TOPAMAX (TOPIRAMATE) [Concomitant]
  12. ACETAMINOPHEN (ACETAMINOPHEN) [Concomitant]
  13. LEVOTHYROXINE (LEVOTHYROXINE SODIUM) [Concomitant]

REACTIONS (15)
  - Bone operation [None]
  - Tendon disorder [None]
  - Abdominal pain [None]
  - Poor quality sleep [None]
  - Exostosis [None]
  - Foot fracture [None]
  - Neuroma [None]
  - Gait disturbance [None]
  - Arthralgia [None]
  - Back pain [None]
  - Tendonitis [None]
  - Dizziness [None]
  - Gait disturbance [None]
  - Arthralgia [None]
  - Off label use [None]
